FAERS Safety Report 17598315 (Version 1)
Quarter: 2020Q1

REPORT INFORMATION
  Report Type: Spontaneous
  Country: US (occurrence: US)
  Receive Date: 20200328
  Receipt Date: 20200328
  Transmission Date: 20200409
  Serious: No
  Sender: FDA-Public Use
  Company Number: None

PATIENT
  Age: 24 Year
  Sex: Female

DRUGS (1)
  1. ETONOGESTREL/ETHINYL ESTRADIOL [Suspect]
     Active Substance: ETHINYL ESTRADIOL\ETONOGESTREL
     Indication: CONTRACEPTION
     Dosage: ?          QUANTITY:1 1 VAGINAL RING;OTHER FREQUENCY:21 DAY INSERTION;?
     Route: 067
     Dates: start: 20200315, end: 20200328

REACTIONS (5)
  - Dysmenorrhoea [None]
  - Vulvovaginal dryness [None]
  - Complication associated with device [None]
  - Loss of libido [None]
  - Vulvovaginal pruritus [None]
